FAERS Safety Report 5274522-8 (Version None)
Quarter: 2007Q1

REPORT INFORMATION
  Report Type: 
  Country: None (occurrence: None)
  Receive Date: 20070323
  Receipt Date: 20070319
  Transmission Date: 20070707
  Serious: Yes (Hospitalization)
  Sender: FDA-Public Use
  Company Number: FR-PFIZER INC-2007021382

PATIENT
  Age: 53 Year
  Sex: Female

DRUGS (8)
  1. CEFPODOXIME PROXETIL TABLET [Suspect]
     Indication: BRONCHITIS
     Route: 048
     Dates: start: 20070107, end: 20070112
  2. OFLOCET [Suspect]
     Indication: BRONCHITIS
     Route: 048
     Dates: start: 20070105, end: 20070107
  3. AUGMENTIN '125' [Suspect]
     Indication: BRONCHITIS
     Route: 048
     Dates: start: 20070105, end: 20070107
  4. DEXAMETHASONE [Suspect]
     Indication: MULTIPLE MYELOMA
     Dosage: TEXT:40 MG SOLUTION FOR INFUSION
     Route: 042
     Dates: start: 20061229, end: 20070201
  5. THALIDOMIDE [Suspect]
     Indication: MULTIPLE MYELOMA
     Dosage: TEXT:200 MG TABLETS
     Route: 048
  6. VELCADE [Suspect]
     Indication: MULTIPLE MYELOMA
     Dosage: TEXT:2.3 MG SOLUTION FOR INFUSION
     Route: 042
     Dates: start: 20061219, end: 20061219
  7. VELCADE [Suspect]
     Dosage: TEXT:2.3 MG SOLUTION FOR INFUSION
     Dates: start: 20070102, end: 20070102
  8. VELCADE [Suspect]
     Dosage: TEXT:2.3 MG SOLUTION FOR INFUSION
     Dates: start: 20070119, end: 20070119

REACTIONS (4)
  - DEHYDRATION [None]
  - EOSINOPHILIA [None]
  - RASH MACULO-PAPULAR [None]
  - RENAL FAILURE ACUTE [None]
